FAERS Safety Report 24975710 (Version 4)
Quarter: 2025Q3

REPORT INFORMATION
  Report Type: Spontaneous
  Country: BR (occurrence: BR)
  Receive Date: 20250217
  Receipt Date: 20250702
  Transmission Date: 20251021
  Serious: Yes (Other)
  Sender: NOVO NORDISK
  Company Number: BR-NOVOPROD-1367600

PATIENT
  Sex: Female
  Weight: 63 kg

DRUGS (5)
  1. SAXENDA [Suspect]
     Active Substance: LIRAGLUTIDE
     Indication: Insulin resistance
     Dosage: 1.2 ?G, QD ( FOR TWO WEEKS)
     Route: 058
  2. SAXENDA [Suspect]
     Active Substance: LIRAGLUTIDE
     Indication: Weight control
     Dosage: 0.60 ?G, QD
     Route: 058
     Dates: start: 202312
  3. SAXENDA [Suspect]
     Active Substance: LIRAGLUTIDE
     Route: 058
     Dates: end: 202403
  4. SAXENDA [Suspect]
     Active Substance: LIRAGLUTIDE
     Dosage: 0.6 ?G, QD (DOSE DECAREASED0
     Route: 058
  5. HYDROCHLOROTHIAZIDE [Concomitant]
     Active Substance: HYDROCHLOROTHIAZIDE
     Indication: Renal lithiasis prophylaxis

REACTIONS (5)
  - Pancreatic neoplasm [Unknown]
  - Hypoglycaemia [Unknown]
  - Incorrect dose administered [Recovered/Resolved]
  - Off label use [Recovered/Resolved]
  - Inappropriate schedule of product administration [Recovered/Resolved]

NARRATIVE: CASE EVENT DATE: 20231201
